FAERS Safety Report 9615268 (Version 2)
Quarter: 2013Q4

REPORT INFORMATION
  Report Type: Spontaneous
  Country: US (occurrence: US)
  Receive Date: 20131011
  Receipt Date: 20131011
  Transmission Date: 20140711
  Serious: No
  Sender: FDA-Public Use
  Company Number: US-PURDUE-USA-2012-0096771

PATIENT
  Sex: Male

DRUGS (1)
  1. BUTRANS [Suspect]
     Indication: PRODUCT USED FOR UNKNOWN INDICATION
     Dosage: 10 MCG/HR, [2 PATCHES]
     Route: 062
     Dates: start: 20121109, end: 20121207

REACTIONS (4)
  - Extra dose administered [Unknown]
  - Rash [Recovered/Resolved]
  - Application site urticaria [Recovered/Resolved]
  - Wheezing [Unknown]
